FAERS Safety Report 12069348 (Version 3)
Quarter: 2016Q2

REPORT INFORMATION
  Report Type: Report from Study
  Country: DE (occurrence: DE)
  Receive Date: 20160211
  Receipt Date: 20160516
  Transmission Date: 20160815
  Serious: Yes (Hospitalization, Other)
  Sender: FDA-Public Use
  Company Number: DE-ABBVIE-16K-062-1554280-00

PATIENT
  Age: 43 Year
  Sex: Female

DRUGS (2)
  1. SALOFALK [Concomitant]
     Active Substance: MESALAMINE
     Indication: PRODUCT USED FOR UNKNOWN INDICATION
  2. HUMIRA [Suspect]
     Active Substance: ADALIMUMAB
     Indication: CROHN^S DISEASE
     Route: 058
     Dates: start: 20150810, end: 20160111

REACTIONS (8)
  - Gastrointestinal anastomotic leak [Recovering/Resolving]
  - Stitch abscess [Not Recovered/Not Resolved]
  - Wound secretion [Recovering/Resolving]
  - Wound complication [Recovering/Resolving]
  - Abdominal adhesions [Recovered/Resolved]
  - Intra-abdominal haemorrhage [Recovered/Resolved]
  - Ovarian cyst [Recovering/Resolving]
  - Procedural intestinal perforation [Recovering/Resolving]

NARRATIVE: CASE EVENT DATE: 2016
